FAERS Safety Report 13767242 (Version 2)
Quarter: 2017Q3

REPORT INFORMATION
  Report Type: Spontaneous
  Country: SE (occurrence: SE)
  Receive Date: 20170719
  Receipt Date: 20170725
  Transmission Date: 20171127
  Serious: Yes (Disabling, Other)
  Sender: FDA-Public Use
  Company Number: SE-ASTRAZENECA-2017SE73074

PATIENT
  Sex: Male

DRUGS (1)
  1. PULMICORT TURBUHALER [Suspect]
     Active Substance: BUDESONIDE
     Dosage: 200 MICROGRAMS/DOSE, 200 DOSES UNKNOWN
     Route: 055

REACTIONS (3)
  - Device malfunction [Unknown]
  - Drug dose omission [Recovered/Resolved]
  - Condition aggravated [Unknown]
